FAERS Safety Report 12368243 (Version 1)
Quarter: 2016Q2

REPORT INFORMATION
  Report Type: Spontaneous
  Country: US (occurrence: US)
  Receive Date: 20160513
  Receipt Date: 20160513
  Transmission Date: 20160815
  Serious: Yes (Other)
  Sender: FDA-Public Use
  Company Number: US-ASTRAZENECA-2016SE17961

PATIENT
  Age: 20815 Day
  Sex: Female
  Weight: 83.9 kg

DRUGS (17)
  1. CIPRO [Concomitant]
     Active Substance: CIPROFLOXACIN HYDROCHLORIDE
     Dosage: 500 MG TABLET TAKE 1 TAB BY MOUTH15 H FOR 7DAYS
  2. TOUJEO [Concomitant]
     Active Substance: INSULIN GLARGINE
     Dosage: 300 UNITS/1 ML
  3. METFORMIN [Concomitant]
     Active Substance: METFORMIN HYDROCHLORIDE
  4. KRILL OIL [Concomitant]
     Active Substance: DIETARY SUPPLEMENT
     Route: 048
  5. BLACK COHOSH [Concomitant]
     Active Substance: BLACK COHOSH
     Route: 048
  6. LEVOTHYROXINE SODIUM. [Concomitant]
     Active Substance: LEVOTHYROXINE SODIUM
     Route: 048
  7. VITAMIN D3 [Concomitant]
     Active Substance: CHOLECALCIFEROL
     Dosage: 5000 UNITS,TWO TIMES A DAY
  8. HYALURONIC ACID [Concomitant]
     Active Substance: HYALURONIC ACID
     Dosage: TWO TIMES A DAY
  9. CALCIUM [Concomitant]
     Active Substance: CALCIUM
     Dosage: 1 DAILY
  10. BYDUREON [Suspect]
     Active Substance: EXENATIDE
     Indication: TYPE 2 DIABETES MELLITUS
     Route: 058
     Dates: start: 20150605, end: 20160120
  11. KCL [Concomitant]
     Active Substance: POTASSIUM CHLORIDE
  12. BACTRIM DS [Concomitant]
     Active Substance: SULFAMETHOXAZOLE\TRIMETHOPRIM
     Dosage: 160MG/800 MG TABLET
  13. PYRIDIUM [Concomitant]
     Active Substance: PHENAZOPYRIDINE
  14. LANTUS [Concomitant]
     Active Substance: INSULIN GLARGINE
     Indication: TYPE 2 DIABETES MELLITUS
     Route: 058
     Dates: start: 2000
  15. HUMALOG [Concomitant]
     Active Substance: INSULIN LISPRO
     Route: 058
     Dates: start: 2000
  16. DIFLUCAN [Concomitant]
     Active Substance: FLUCONAZOLE
  17. LANSOPRAZOLE. [Concomitant]
     Active Substance: LANSOPRAZOLE

REACTIONS (12)
  - Ileus paralytic [Unknown]
  - Injection site pain [Unknown]
  - Hepatic steatosis [Unknown]
  - Injection site bruising [Unknown]
  - Pain [Unknown]
  - Abdominal pain upper [Recovering/Resolving]
  - Swelling [Unknown]
  - Injection site nodule [Unknown]
  - Tenderness [Unknown]
  - Injection site inflammation [Unknown]
  - Injection site erythema [Unknown]
  - Local swelling [Recovering/Resolving]

NARRATIVE: CASE EVENT DATE: 20151207
